FAERS Safety Report 8799983 (Version 2)
Quarter: 2013Q1

REPORT INFORMATION
  Report Type: Spontaneous
  Country: US (occurrence: US)
  Receive Date: 20120921
  Receipt Date: 20130127
  Transmission Date: 20140127
  Serious: No
  Sender: FDA-Public Use
  Company Number: US-009507513-1209USA005250

PATIENT
  Sex: Female
  Weight: 73.92 kg

DRUGS (1)
  1. IMPLANON [Suspect]
     Indication: CONTRACEPTION
     Dosage: 1 ROD FOR 3 YEARS
     Route: 059
     Dates: end: 20120710

REACTIONS (4)
  - Pregnancy [Unknown]
  - Adverse event [Unknown]
  - Device breakage [Unknown]
  - Implant site scar [Unknown]
